FAERS Safety Report 17041600 (Version 1)
Quarter: 2019Q4

REPORT INFORMATION
  Report Type: Spontaneous
  Country: GB (occurrence: GB)
  Receive Date: 20191118
  Receipt Date: 20191118
  Transmission Date: 20200122
  Serious: Yes (Other)
  Sender: FDA-Public Use
  Company Number: GB-SUN PHARMACEUTICAL INDUSTRIES LTD-2019RR-227956

PATIENT
  Age: 52 Year
  Sex: Female
  Weight: 11 kg

DRUGS (10)
  1. EPILIM [Concomitant]
     Active Substance: VALPROATE SODIUM
     Indication: ILL-DEFINED DISORDER
     Dosage: 2 TO BE TAKEN BD ()
     Route: 065
     Dates: start: 20130613
  2. SUMATRIPTAN. [Concomitant]
     Active Substance: SUMATRIPTAN
     Indication: ILL-DEFINED DISORDER
     Dosage: TAKE ONE AS DIRECTED ()
     Route: 065
     Dates: start: 20141209
  3. LYMECYCLINE [Concomitant]
     Active Substance: LYMECYCLINE
     Indication: ILL-DEFINED DISORDER
     Dosage: TAKE ONE DAILY ()
     Route: 065
     Dates: start: 20110310
  4. BACLOFEN. [Concomitant]
     Active Substance: BACLOFEN
     Indication: ILL-DEFINED DISORDER
     Dosage: ONE THREE TIMES DAILY AND 1/2 TABLET AT NIGHT ()
     Route: 065
     Dates: start: 20110310
  5. FUSIDIC ACID [Concomitant]
     Active Substance: FUSIDIC ACID
     Indication: ILL-DEFINED DISORDER
     Dosage: APPLY 3 TIMES A DAY ()
     Route: 065
     Dates: start: 20180131
  6. FLUCLOXACILLIN [Concomitant]
     Active Substance: FLUCLOXACILLIN
     Indication: ILL-DEFINED DISORDER
     Dosage: TAKE ONE 4 TIMES/DAY ()
     Route: 065
     Dates: start: 20180110, end: 20180119
  7. TRIMETHOPRIM. [Concomitant]
     Active Substance: TRIMETHOPRIM
     Indication: ILL-DEFINED DISORDER
     Dosage: TAKE ONE TWICE DAILY ()
     Route: 065
     Dates: start: 20150722
  8. CLARITHROMYCIN. [Suspect]
     Active Substance: CLARITHROMYCIN
     Indication: PRODUCT USED FOR UNKNOWN INDICATION
     Dosage: ()
     Route: 065
     Dates: start: 20180201
  9. DIPROBASE [Concomitant]
     Active Substance: CHLOROCRESOL
     Indication: ILL-DEFINED DISORDER
     Dosage: APPLY AS NEEDED ()
     Route: 065
     Dates: start: 20120720
  10. BISOPROLOL [Concomitant]
     Active Substance: BISOPROLOL
     Indication: ILL-DEFINED DISORDER
     Dosage: TAKE ONE EACH MORNING ()
     Route: 065
     Dates: start: 20180124

REACTIONS (1)
  - Heart rate increased [Recovered/Resolved]

NARRATIVE: CASE EVENT DATE: 20180201
